FAERS Safety Report 8770105 (Version 1)
Quarter: 2012Q4

REPORT INFORMATION
  Report Type: 
  Country: BR (occurrence: BR)
  Receive Date: 20120904
  Receipt Date: 20120904
  Transmission Date: 20130627
  Serious: Yes (Other)
  Sender: FDA-Public Use
  Company Number: BR-AMGEN-BRASP2012055263

PATIENT
  Age: 54 Year
  Sex: Male
  Weight: 90 kg

DRUGS (10)
  1. ENBREL [Suspect]
     Indication: PSORIATIC ARTHROPATHY
     Dosage: 50 mg, once weekly
     Route: 058
     Dates: start: 201112
  2. AMLODIPINE BESILATE [Concomitant]
     Dosage: 5 mg, UNK
  3. BUFERIN [Concomitant]
     Dosage: 500 mg, UNK
  4. VIVACOR (CARVEDILOL) [Concomitant]
     Dosage: 10 mg, UNK
  5. ZETIA [Concomitant]
     Dosage: 10 mg, UNK
  6. ALLOPURINOL [Concomitant]
     Dosage: 300 mg, UNK
  7. FOLIC ACID [Concomitant]
     Dosage: 5 mg, UNK
  8. MELOXICAM [Concomitant]
     Dosage: 7.5 mg, UNK
  9. DEFLAZACORT [Concomitant]
     Dosage: 6 mg, UNK
  10. HYDROXYCHLOROQUINE [Concomitant]
     Dosage: UNK

REACTIONS (5)
  - Psoriatic arthropathy [Unknown]
  - Application site pain [Unknown]
  - Drug ineffective [Unknown]
  - Injection site pain [Unknown]
  - Influenza [Unknown]
